FAERS Safety Report 16923373 (Version 1)
Quarter: 2019Q4

REPORT INFORMATION
  Report Type: Spontaneous
  Country: GB (occurrence: GB)
  Receive Date: 20191016
  Receipt Date: 20191016
  Transmission Date: 20200122
  Serious: Yes (Hospitalization)
  Sender: FDA-Public Use
  Company Number: GB-BAYER-2019-181072

PATIENT
  Age: 33 Year
  Sex: Male
  Weight: 82 kg

DRUGS (1)
  1. GADOVIST [Suspect]
     Active Substance: GADOBUTROL
     Indication: MYOCARDITIS
     Dosage: 12 ML, UNK
     Route: 042
     Dates: start: 20190906, end: 20190906

REACTIONS (8)
  - Periorbital swelling [Recovering/Resolving]
  - Urticaria [Recovering/Resolving]
  - Chest discomfort [Unknown]
  - Dyspnoea [Recovering/Resolving]
  - Lip swelling [Recovering/Resolving]
  - Rhinorrhoea [Recovering/Resolving]
  - Nausea [Recovering/Resolving]
  - Allergy to arthropod sting [Unknown]

NARRATIVE: CASE EVENT DATE: 20190906
